FAERS Safety Report 23686684 (Version 1)
Quarter: 2024Q1

REPORT INFORMATION
  Report Type: Report from Study
  Country: US (occurrence: US)
  Receive Date: 20240329
  Receipt Date: 20240329
  Transmission Date: 20240410
  Serious: Yes (Other)
  Sender: FDA-Public Use
  Company Number: US-ABBVIE-5694765

PATIENT
  Sex: Male

DRUGS (1)
  1. HUMIRA [Suspect]
     Active Substance: ADALIMUMAB
     Indication: Rheumatoid arthritis
     Dosage: FORM STRENGTH 40 MILLIGRAM/CITRATE FREE
     Route: 058
     Dates: start: 20230129, end: 20240211

REACTIONS (2)
  - Meniscus injury [Recovering/Resolving]
  - Rheumatoid arthritis [Recovering/Resolving]
